FAERS Safety Report 10442731 (Version 1)
Quarter: 2014Q3

REPORT INFORMATION
  Report Type: Spontaneous
  Country: GB (occurrence: None)
  Receive Date: 20140908
  Receipt Date: 20140908
  Transmission Date: 20150326
  Serious: Yes (Other)
  Sender: FDA-Public Use
  Company Number: B1027678A

PATIENT
  Sex: Female

DRUGS (1)
  1. SODIUM FLUORIDE TOOTHPASTE (SODIUM FLUORIDE) [Suspect]
     Active Substance: SODIUM FLUORIDE
     Indication: DENTAL CLEANING
     Dosage: DENTAL

REACTIONS (5)
  - Lip and/or oral cavity cancer [None]
  - Cheilitis [None]
  - Erythema [None]
  - Tongue discolouration [None]
  - Glossitis [None]
